FAERS Safety Report 5943719-3 (Version None)
Quarter: 2008Q4

REPORT INFORMATION
  Report Type: 
  Country: None (occurrence: None)
  Receive Date: 20081106
  Receipt Date: 20080902
  Transmission Date: 20090506
  Serious: No
  Sender: FDA-Public Use
  Company Number: US-ABBOTT-08P-163-0473566-00

PATIENT
  Sex: Female

DRUGS (6)
  1. KALETRA [Suspect]
     Indication: HIV INFECTION
     Dosage: FOUR TABLETS, DAILY
     Route: 048
     Dates: start: 20080701
  2. METFORMIN HCL [Concomitant]
     Indication: DIABETES MELLITUS
     Route: 048
  3. PREGABALIN [Concomitant]
     Indication: NEUROPATHY PERIPHERAL
     Route: 048
  4. AMITRIPTYLINE HCL [Concomitant]
     Indication: ANXIETY
     Route: 048
  5. EMTRICITABINE [Concomitant]
     Indication: HIV INFECTION
     Route: 048
  6. ATAZANAVIR SULFATE [Concomitant]
     Indication: HIV INFECTION
     Route: 048

REACTIONS (4)
  - COUGH [None]
  - DIARRHOEA [None]
  - RESPIRATORY TRACT INFECTION [None]
  - VOMITING [None]
